FAERS Safety Report 6883867-7 (Version None)
Quarter: 2010Q3

REPORT INFORMATION
  Report Type: 
  Country: None (occurrence: None)
  Receive Date: 20100708
  Receipt Date: 20100430
  Transmission Date: 20110219
  Serious: Yes (Other)
  Sender: FDA-Public Use
  Company Number: 2010022887

PATIENT

DRUGS (2)
  1. CHANTIX [Suspect]
     Dates: start: 20090601
  2. XANAX [Suspect]

REACTIONS (4)
  - AGGRESSION [None]
  - ANXIETY [None]
  - CONVULSION [None]
  - DEPRESSION [None]
